FAERS Safety Report 5456869-5 (Version None)
Quarter: 2007Q3

REPORT INFORMATION
  Report Type: 
  Country: None (occurrence: None)
  Receive Date: 20070918
  Receipt Date: 20070531
  Transmission Date: 20080115
  Serious: Yes (Other)
  Sender: FDA-Public Use
  Company Number: US-ASTRAZENECA-2006UW26557

PATIENT
  Age: 36 Year
  Sex: Male
  Weight: 93.2 kg

DRUGS (7)
  1. SEROQUEL [Suspect]
     Indication: DEPRESSION
     Route: 048
     Dates: start: 19980101
  2. SEROQUEL [Suspect]
     Indication: BIPOLAR DISORDER
     Route: 048
     Dates: start: 19980101
  3. SEROQUEL [Suspect]
     Indication: POST-TRAUMATIC STRESS DISORDER
     Route: 048
     Dates: start: 19980101
  4. GEODON [Concomitant]
  5. HALDOL [Concomitant]
  6. RISPERDAL [Concomitant]
  7. THORAZINE [Concomitant]

REACTIONS (2)
  - PANCREATITIS [None]
  - TARDIVE DYSKINESIA [None]
